FAERS Safety Report 25249828 (Version 1)
Quarter: 2025Q2

REPORT INFORMATION
  Report Type: Spontaneous
  Country: US (occurrence: BS)
  Receive Date: 20250429
  Receipt Date: 20250429
  Transmission Date: 20250716
  Serious: Yes (Other)
  Sender: CROWN LABORATORIES, INC.
  Company Number: BS-Crown Laboratories, Inc.-2175624

PATIENT
  Age: 72 Year
  Sex: Female
  Weight: 65.8 kg

DRUGS (1)
  1. BLUE LIZARD SENSITIVE SPF 50 [Suspect]
     Active Substance: ZINC OXIDE

REACTIONS (6)
  - Rash [Recovering/Resolving]
  - Blood pressure increased [Recovering/Resolving]
  - Nausea [Recovering/Resolving]
  - Dizziness [Recovering/Resolving]
  - Pruritus [Recovering/Resolving]
  - Erythema [Recovering/Resolving]

NARRATIVE: CASE EVENT DATE: 20250402
